FAERS Safety Report 8057147-0 (Version None)
Quarter: 2012Q1

REPORT INFORMATION
  Report Type: 
  Country: None (occurrence: None)
  Receive Date: 20120119
  Receipt Date: 20120110
  Transmission Date: 20120608
  Serious: No
  Sender: FDA-Public Use
  Company Number: CA-ELI_LILLY_AND_COMPANY-CA201111000165

PATIENT
  Sex: Male

DRUGS (13)
  1. SIMVASTATIN [Concomitant]
     Dosage: 10 MG, QD
  2. TYLENOL                                 /SCH/ [Concomitant]
     Dosage: 1 DF, PRN
  3. ATENOLOL [Concomitant]
     Dosage: 25 MG, QD
  4. ADCIRCA [Suspect]
     Dosage: 40 MG, QD
  5. RATIO-CLOBETASOL [Concomitant]
     Dosage: 1 DF, PRN
  6. WARFARIN SODIUM [Concomitant]
     Dosage: 6 MG, QD
  7. PERINDOPRIL ERBUMINE [Concomitant]
     Dosage: 6 MG, EACH MORNING
  8. CITALOPRAM [Concomitant]
     Dosage: 20 MG, BID
  9. ADCIRCA [Suspect]
     Dosage: 20 MG, UNK
     Dates: start: 20111001
  10. FUROSEMIDE [Concomitant]
     Dosage: 40 MG, QD
  11. SECARIS [Concomitant]
     Dosage: 1 DF, PRN
  12. WARFARIN SODIUM [Concomitant]
     Dosage: 7 MG, QD
  13. DIAMICRON [Concomitant]
     Dosage: 30 MG, QD

REACTIONS (5)
  - VISION BLURRED [None]
  - NIGHTMARE [None]
  - ABDOMINAL DISCOMFORT [None]
  - DIARRHOEA [None]
  - PRURITUS [None]
